FAERS Safety Report 6267351-X (Version None)
Quarter: 2009Q3

REPORT INFORMATION
  Report Type: 
  Country: None (occurrence: None)
  Receive Date: 20090714
  Receipt Date: 20090706
  Transmission Date: 20100115
  Serious: Yes (Other)
  Sender: FDA-Public Use
  Company Number: B0556904A

PATIENT
  Sex: Male
  Weight: 19 kg

DRUGS (6)
  1. RELENZA [Suspect]
     Indication: INFLUENZA
     Dosage: 10MG PER DAY
     Route: 055
     Dates: start: 20090105, end: 20090106
  2. FLOMOX [Concomitant]
     Indication: BRONCHITIS
     Dosage: 1.68G PER DAY
     Route: 048
     Dates: start: 20090105, end: 20090108
  3. ASVERIN [Concomitant]
     Indication: BRONCHITIS
     Dosage: 7.8ML PER DAY
     Route: 048
     Dates: start: 20090105, end: 20090108
  4. BIOFERMIN R [Concomitant]
     Indication: GASTROENTERITIS
     Dosage: 1.5G PER DAY
     Route: 048
     Dates: start: 20090105, end: 20090108
  5. PERIACTIN [Concomitant]
     Indication: BRONCHITIS
     Dosage: 6.9ML PER DAY
     Route: 048
     Dates: start: 20090105, end: 20090108
  6. MUCODYNE [Concomitant]
     Indication: BRONCHITIS
     Dosage: 9ML PER DAY
     Route: 048
     Dates: start: 20090105, end: 20090108

REACTIONS (4)
  - ABNORMAL BEHAVIOUR [None]
  - COGNITIVE DISORDER [None]
  - DYSARTHRIA [None]
  - SPEECH DISORDER [None]
